FAERS Safety Report 17684382 (Version 1)
Quarter: 2020Q2

REPORT INFORMATION
  Report Type: Spontaneous
  Country: US (occurrence: US)
  Receive Date: 20200419
  Receipt Date: 20200419
  Transmission Date: 20200714
  Serious: Yes (Other)
  Sender: FDA-Public Use
  Company Number: None

PATIENT
  Age: 59 Year
  Sex: Female
  Weight: 87.75 kg

DRUGS (8)
  1. ANTIHISTAMINE [Concomitant]
     Active Substance: ANTIHISTAMINES NOS
  2. OMEGA 3, 6, 9 MULTI W/MEGA B COMPLEX [Concomitant]
  3. EMGALITY [Suspect]
     Active Substance: GALCANEZUMAB-GNLM
     Indication: MIGRAINE
     Dosage: ?          QUANTITY:1 INJECTION(S);OTHER FREQUENCY:MONTHLY;?
     Route: 058
     Dates: start: 20190915, end: 20200415
  4. LEVOTHYROXINE. [Concomitant]
     Active Substance: LEVOTHYROXINE
  5. FLEXERIL [Concomitant]
     Active Substance: CYCLOBENZAPRINE HYDROCHLORIDE
  6. OXYCODONE 10MG ER [Concomitant]
  7. VITAMIN D3 [Concomitant]
     Active Substance: CHOLECALCIFEROL
  8. EFAS HAND SANITIZER [Concomitant]
     Active Substance: ALCOHOL

REACTIONS (14)
  - Apathy [None]
  - Anxiety [None]
  - Sleep deficit [None]
  - Muscle atrophy [None]
  - Poverty of speech [None]
  - Disturbance in attention [None]
  - Weight increased [None]
  - Amnesia [None]
  - Chills [None]
  - Hallucination [None]
  - Visual impairment [None]
  - Thinking abnormal [None]
  - Depression [None]
  - Hot flush [None]

NARRATIVE: CASE EVENT DATE: 20200103
